FAERS Safety Report 6628299-1 (Version None)
Quarter: 2010Q1

REPORT INFORMATION
  Report Type: 
  Country: None (occurrence: None)
  Receive Date: 20100311
  Receipt Date: 20100305
  Transmission Date: 20100710
  Serious: Yes (Life-Threatening, Hospitalization)
  Sender: FDA-Public Use
  Company Number: JP-ROCHE-634266

PATIENT
  Sex: Female
  Weight: 43 kg

DRUGS (33)
  1. TOCILIZUMAB [Suspect]
     Indication: JUVENILE ARTHRITIS
     Route: 041
     Dates: start: 20090415, end: 20090415
  2. TOCILIZUMAB [Suspect]
     Route: 041
     Dates: start: 20090513, end: 20090513
  3. TOCILIZUMAB [Suspect]
     Route: 041
     Dates: start: 20090610, end: 20090610
  4. TOCILIZUMAB [Suspect]
     Route: 041
     Dates: start: 20090707, end: 20090707
  5. TOCILIZUMAB [Suspect]
     Route: 041
     Dates: start: 20090804, end: 20090804
  6. TOCILIZUMAB [Suspect]
     Route: 041
     Dates: start: 20090831, end: 20090831
  7. TOCILIZUMAB [Suspect]
     Route: 041
     Dates: start: 20090929, end: 20090929
  8. TOCILIZUMAB [Suspect]
     Route: 041
     Dates: start: 20090101
  9. TOCILIZUMAB [Suspect]
     Route: 041
     Dates: start: 20100205
  10. IBUPROFEN [Suspect]
     Indication: JUVENILE ARTHRITIS
     Dosage: FORM: PER ORAL AGENT.
     Route: 048
     Dates: start: 20090414, end: 20090426
  11. IBUPROFEN [Suspect]
     Dosage: FORM: PER ORAL AGENT, DRUG: DISCONTINUED
     Route: 048
     Dates: start: 20090427, end: 20090514
  12. PREDONINE [Suspect]
     Indication: JUVENILE ARTHRITIS
     Route: 048
     Dates: start: 20081222, end: 20090118
  13. PREDONINE [Suspect]
     Route: 048
     Dates: start: 20090119, end: 20090413
  14. PREDONINE [Suspect]
     Route: 048
     Dates: start: 20090414, end: 20090617
  15. PREDONINE [Suspect]
     Dosage: DOSE DECREASED
     Route: 048
     Dates: start: 20090618, end: 20090716
  16. PREDONINE [Suspect]
     Dosage: DOSE DECREASED
     Route: 048
     Dates: start: 20090717, end: 20090726
  17. PREDONINE [Suspect]
     Dosage: DOSE DECREASED
     Route: 048
     Dates: start: 20090727, end: 20090803
  18. PREDONINE [Suspect]
     Dosage: DOSE DECREASED
     Route: 048
     Dates: start: 20090804, end: 20090817
  19. PREDONINE [Suspect]
     Dosage: DOSE DECREASED
     Route: 048
     Dates: start: 20090818, end: 20090830
  20. PREDONINE [Suspect]
     Route: 048
     Dates: start: 20090831
  21. METHOTREXATE [Concomitant]
     Dosage: FORM: PER ORAL AGENT.
     Route: 048
     Dates: start: 20081222, end: 20090104
  22. METHOTREXATE [Concomitant]
     Dosage: FORM: PER ORAL AGENT.
     Route: 048
     Dates: start: 20090105, end: 20090118
  23. METHOTREXATE [Concomitant]
     Route: 048
     Dates: start: 20090119
  24. SELBEX [Concomitant]
     Dosage: FORM: PER ORAL AGENT.
     Route: 048
     Dates: start: 20081208
  25. OMEPRAL [Concomitant]
     Route: 041
     Dates: start: 20090515, end: 20090519
  26. TAKEPRON [Concomitant]
     Dosage: FORM: PER ORAL AGENT.
     Route: 048
     Dates: start: 20090519, end: 20090716
  27. GASTER D [Concomitant]
     Dosage: FORM: PER ORAL AGENT.
     Route: 048
     Dates: start: 20090717
  28. FERO-GRADUMET [Concomitant]
     Route: 048
     Dates: start: 20090727
  29. ATARAX [Concomitant]
     Dosage: FORM: PER ORAL AGENT.
     Route: 048
     Dates: start: 20090929
  30. DEPAS [Concomitant]
     Dosage: DOSE FORM: MINUTE GRAIN
     Route: 048
     Dates: start: 20090914
  31. AZULFIDINE [Concomitant]
     Route: 048
     Dates: start: 20091029
  32. LOXONIN [Concomitant]
     Route: 048
     Dates: start: 20091126
  33. CYTOTEC [Concomitant]
     Route: 048
     Dates: start: 20091126

REACTIONS (2)
  - ARTHRITIS [None]
  - GASTRIC PERFORATION [None]
